FAERS Safety Report 5473304-1 (Version None)
Quarter: 2007Q4

REPORT INFORMATION
  Report Type: 
  Country: None (occurrence: None)
  Receive Date: 20071001
  Receipt Date: 20070924
  Transmission Date: 20080405
  Serious: Yes (Hospitalization)
  Sender: FDA-Public Use
  Company Number: BE-AMGEN-US234464

PATIENT
  Sex: Male
  Weight: 71 kg

DRUGS (34)
  1. ENBREL [Suspect]
     Indication: RHEUMATOID ARTHRITIS
     Route: 058
     Dates: start: 20051108
  2. RHEUMATREX [Suspect]
     Indication: RHEUMATOID ARTHRITIS
     Dosage: 2.5 MG EVERY 1 TRI
     Route: 048
     Dates: start: 20051108
  3. BENERVA [Concomitant]
     Dosage: UNKNOWN
     Dates: start: 20070511, end: 20070515
  4. REMERON [Concomitant]
     Indication: DEPRESSION
     Dosage: UNKNOWN
     Dates: start: 20070208
  5. DOMINAL [Concomitant]
     Indication: INSOMNIA
     Dosage: UNKNOWN
     Dates: start: 20070209
  6. PREDNISOLONE [Concomitant]
     Indication: RHEUMATOID ARTHRITIS
     Route: 048
     Dates: start: 20051010
  7. PREDNISOLONE [Concomitant]
     Route: 048
     Dates: start: 20060601, end: 20060614
  8. PREDNISOLONE [Concomitant]
     Route: 048
     Dates: start: 20060615, end: 20060717
  9. PREDNISOLONE [Concomitant]
     Route: 048
     Dates: start: 20060618, end: 20060828
  10. PREDNISOLONE [Concomitant]
     Route: 048
     Dates: start: 20060829, end: 20061207
  11. PREDNISOLONE [Concomitant]
     Route: 048
     Dates: start: 20061208, end: 20070301
  12. PREDNISOLONE [Concomitant]
     Route: 048
     Dates: start: 20070302, end: 20070510
  13. PREDNISOLONE [Concomitant]
     Route: 048
     Dates: start: 20070514, end: 20070618
  14. PREDNISOLONE [Concomitant]
     Route: 045
     Dates: start: 20070629
  15. MEDROL [Concomitant]
     Indication: ARTHRALGIA
     Route: 048
     Dates: start: 20070511, end: 20070618
  16. PREVACID [Concomitant]
     Indication: OESOPHAGITIS
     Route: 048
     Dates: start: 20041001, end: 20051201
  17. ASPIRIN [Concomitant]
     Indication: PROPHYLAXIS
     Dosage: UNKNOWN DOSE ONCE DAILY
     Dates: start: 19881101
  18. DILTIAZEM [Concomitant]
     Indication: HYPERTENSION
     Route: 048
     Dates: start: 19891101
  19. PRAVASTATIN [Concomitant]
     Indication: HYPERCHOLESTEROLAEMIA
     Route: 048
     Dates: start: 19900101
  20. THERALENE [Concomitant]
     Indication: RHEUMATOID ARTHRITIS
     Route: 048
     Dates: start: 20051010
  21. AMITRIPTYLINE HYDROCHLORIDE [Concomitant]
  22. MOBIC [Concomitant]
     Indication: RHEUMATOID ARTHRITIS
     Dosage: 15 MG; UNSPECIFIED FREQUENCY
     Dates: start: 20050915
  23. PARACETAMOL/TRAMADOL HYDROCHLORIDE [Concomitant]
     Indication: RHEUMATOID ARTHRITIS
     Dosage: 325 MG; UNSPECIFIED FREQUENCY
     Dates: start: 20051010, end: 20051208
  24. TRAMADOL HCL [Concomitant]
     Indication: RHEUMATOID ARTHRITIS
     Dosage: 37.5 MG; UNSPECIFIED FREQUENCY
     Dates: start: 20051010, end: 20051208
  25. CALCIUM [Concomitant]
     Indication: MUSCLE SPASMS
     Dosage: 600 MG; UNSPECIFIED FREQUENCY
     Dates: start: 20051208
  26. VITAMIN D [Concomitant]
     Indication: MUSCLE SPASMS
     Dosage: 400 MG; UNSPECIFIED FREQUENCY
     Dates: start: 20051209
  27. PANTOPRAZOLE SODIUM [Concomitant]
     Indication: OESOPHAGITIS
     Dates: start: 20051201, end: 20061025
  28. CITALOPRAM HYDROBROMIDE [Concomitant]
     Indication: ANXIETY
     Dosage: UNKNOWN
     Dates: start: 20060106, end: 20060328
  29. MYOLASTAN [Concomitant]
     Indication: MUSCLE SPASMS
     Dosage: UNKNOWN
     Dates: start: 20060103
  30. ESOMEPRAZOLE MAGNESIUM [Concomitant]
     Indication: OESOPHAGITIS
     Dosage: 40 MG; UNSPECIFIED FREQUENCY
     Dates: start: 20061026
  31. IBUPROFEN [Concomitant]
     Dosage: UNKNOWN
     Dates: start: 20070618, end: 20070620
  32. DOLZAM [Concomitant]
     Dosage: UNKNOWN
     Dates: start: 20070511, end: 20070515
  33. ALPRAZOLAM [Concomitant]
     Indication: ANXIETY
     Dosage: 0.5 MG; UNSPECIFIED FREQUENCY
     Dates: start: 20061111, end: 20070225
  34. TRANXENE [Concomitant]
     Indication: ANXIETY
     Dosage: 5 MG EVERY 1 CYC
     Route: 048
     Dates: start: 19900101, end: 20061208

REACTIONS (1)
  - INFLAMMATION [None]
